FAERS Safety Report 4403704-X (Version None)
Quarter: 2004Q3

REPORT INFORMATION
  Report Type: 
  Country: None (occurrence: None)
  Receive Date: 20040721
  Receipt Date: 20030918
  Transmission Date: 20050211
  Serious: Yes (Other)
  Sender: FDA-Public Use
  Company Number: PHBS2003JP10219

PATIENT
  Age: 27 Year
  Sex: Male

DRUGS (1)
  1. CYCLOSPORINE [Suspect]
     Indication: UVEITIS
     Route: 065
     Dates: start: 20000101

REACTIONS (1)
  - BEHCET'S SYNDROME [None]
